FAERS Safety Report 7040586-4 (Version None)
Quarter: 2010Q4

REPORT INFORMATION
  Report Type: 
  Country: None (occurrence: None)
  Receive Date: 20101006
  Receipt Date: 20100920
  Transmission Date: 20110411
  Serious: Yes (Other)
  Sender: FDA-Public Use
  Company Number: ACO_02306_2010

PATIENT
  Age: 28 Year
  Sex: Male

DRUGS (3)
  1. AMPYRA [Suspect]
     Indication: MULTIPLE SCLEROSIS
     Dosage: (10 MG QD ORAL), (10 MG BID ORAL)
     Route: 048
     Dates: start: 20100831, end: 20100901
  2. AMPYRA [Suspect]
     Indication: MULTIPLE SCLEROSIS
     Dosage: (10 MG QD ORAL), (10 MG BID ORAL)
     Route: 048
     Dates: start: 20100901
  3. CAMPATH [Concomitant]

REACTIONS (2)
  - ALOPECIA [None]
  - MEMORY IMPAIRMENT [None]
